FAERS Safety Report 6368420-6 (Version None)
Quarter: 2009Q3

REPORT INFORMATION
  Report Type: 
  Country: None (occurrence: None)
  Receive Date: 20090825
  Receipt Date: 20090812
  Transmission Date: 20100115
  Serious: Yes (Hospitalization, Other)
  Sender: FDA-Public Use
  Company Number: THYM-1001152

PATIENT
  Age: 34 Year
  Sex: Male
  Weight: 108 kg

DRUGS (20)
  1. THYMOGLOBULIN [Suspect]
     Indication: KIDNEY TRANSPLANT REJECTION
     Dosage: 125 MG, QD, INTRAVENOUS
     Route: 042
     Dates: start: 20080802, end: 20080807
  2. MYCOPHENOLATE MOFETIL [Concomitant]
  3. PREDNISONE TAB [Concomitant]
  4. ACYCLOVIR [Concomitant]
  5. BACTRIM [Concomitant]
  6. DOCUSATE (DOCUSATE) [Concomitant]
  7. COREG [Concomitant]
  8. VICODIN [Concomitant]
  9. FOLIC ACID [Concomitant]
  10. NEPHRO-VITE (VITAMINS NOS) [Concomitant]
  11. LOVAZA [Concomitant]
  12. FISH OIL (FISH OIL) [Concomitant]
  13. PRILOSEC [Concomitant]
  14. K-PHOS (POTASSIUM PHOSPHATE MONOBASIC) [Concomitant]
  15. PROCARDIA XL [Concomitant]
  16. LEVOPHED [Concomitant]
  17. VANCOMYCIN [Concomitant]
  18. ZOSYN [Concomitant]
  19. BACTRIM [Concomitant]
  20. IMMUNE GLOBULIN (HUMAN) [Concomitant]

REACTIONS (4)
  - BLOOD PRESSURE DECREASED [None]
  - HAEMODIALYSIS [None]
  - RENAL FAILURE ACUTE [None]
  - SERUM SICKNESS [None]
